FAERS Safety Report 6431315-3 (Version None)
Quarter: 2009Q4

REPORT INFORMATION
  Report Type: 
  Country: None (occurrence: None)
  Receive Date: 20091106
  Receipt Date: 20091027
  Transmission Date: 20100525
  Serious: Yes (Hospitalization, Other)
  Sender: FDA-Public Use
  Company Number: US-PFIZER INC-2008066376

PATIENT
  Sex: Female

DRUGS (4)
  1. LIPITOR [Suspect]
     Indication: BLOOD CHOLESTEROL INCREASED
     Dosage: 10 MG, 1X/DAY
     Route: 048
  2. LYRICA [Suspect]
     Indication: HERPES ZOSTER
     Dates: start: 20080101
  3. PROTONIX [Suspect]
     Indication: GASTROOESOPHAGEAL REFLUX DISEASE
     Dosage: 40 MG, 1X/DAY
     Route: 048
     Dates: start: 20050101
  4. RISPERDAL [Concomitant]

REACTIONS (6)
  - DIZZINESS [None]
  - FALL [None]
  - KNEE ARTHROPLASTY [None]
  - MASS [None]
  - SPINAL COLUMN STENOSIS [None]
  - UPPER LIMB FRACTURE [None]
